FAERS Safety Report 10273131 (Version 1)
Quarter: 2014Q2

REPORT INFORMATION
  Report Type: Spontaneous
  Country: CN (occurrence: None)
  Receive Date: 20140630
  Receipt Date: 20140630
  Transmission Date: 20141212
  Serious: Yes (Other)
  Sender: FDA-Public Use
  Company Number: SYM-2014-22383

PATIENT
  Age: 34 Year
  Sex: Female

DRUGS (3)
  1. VERTEPORFIN [Suspect]
     Indication: HAEMANGIOMA OF RETINA
  2. LUCENTIS INJECTION [Suspect]
     Indication: PRODUCT USED FOR UNKNOWN INDICATION
     Route: 031
  3. DEXAMETHASONE (INJECTION) (DEXAMETHASONE) [Concomitant]

REACTIONS (4)
  - Retinal pigment epitheliopathy [None]
  - Choroidal haemorrhage [None]
  - Retinal detachment [None]
  - Visual acuity reduced [None]
